FAERS Safety Report 19210414 (Version 3)
Quarter: 2021Q2

REPORT INFORMATION
  Report Type: Report from Study
  Country: DE (occurrence: DE)
  Receive Date: 20210504
  Receipt Date: 20210514
  Transmission Date: 20210717
  Serious: Yes (Hospitalization, Other)
  Sender: FDA-Public Use
  Company Number: NVSC2020DE336329

PATIENT
  Sex: Female
  Weight: 55 kg

DRUGS (16)
  1. LUCENTIS [Suspect]
     Active Substance: RANIBIZUMAB
     Dosage: 0.5 MG (6 TIMES)
     Route: 031
     Dates: start: 20150224, end: 201604
  2. LUCENTIS [Suspect]
     Active Substance: RANIBIZUMAB
     Dosage: 0.5 MG (PER APPLICATION)
     Route: 031
     Dates: start: 20170807
  3. LUCENTIS [Suspect]
     Active Substance: RANIBIZUMAB
     Dosage: 0.5 MG (1X PER APPLICATION)
     Route: 031
     Dates: start: 20160815
  4. LUCENTIS [Suspect]
     Active Substance: RANIBIZUMAB
     Dosage: 0.5 MG (PER APPLICATION)
     Route: 031
     Dates: start: 20161010
  5. LUCENTIS [Suspect]
     Active Substance: RANIBIZUMAB
     Dosage: 0.5 MG (PER APPLICATION)
     Route: 031
     Dates: start: 20161219
  6. LUCENTIS [Suspect]
     Active Substance: RANIBIZUMAB
     Dosage: 0.5 MG (PER APPLICATION)
     Route: 031
     Dates: start: 20170710
  7. LUCENTIS [Suspect]
     Active Substance: RANIBIZUMAB
     Dosage: 0.5 MG (PER APPLICATION)
     Route: 031
     Dates: start: 20180215
  8. LUCENTIS [Suspect]
     Active Substance: RANIBIZUMAB
     Indication: NEOVASCULAR AGE-RELATED MACULAR DEGENERATION
     Dosage: 0.5 MG (PER APPLICATION)
     Route: 031
     Dates: start: 201502, end: 201604
  9. LUCENTIS [Suspect]
     Active Substance: RANIBIZUMAB
     Dosage: 0.5 MG (1X PER APPLICATION)
     Route: 031
     Dates: start: 20160407
  10. FENTANYL. [Suspect]
     Active Substance: FENTANYL
     Indication: PRODUCT USED FOR UNKNOWN INDICATION
     Dosage: UNK
     Route: 065
  11. LUCENTIS [Suspect]
     Active Substance: RANIBIZUMAB
     Dosage: 0.5 MG (PER APPLICATION)
     Route: 031
     Dates: start: 20170904
  12. HYDROCHLOROTHIAZIDE. [Suspect]
     Active Substance: HYDROCHLOROTHIAZIDE
     Indication: PRODUCT USED FOR UNKNOWN INDICATION
     Dosage: UNK
     Route: 065
  13. LUCENTIS [Suspect]
     Active Substance: RANIBIZUMAB
     Dosage: 0.5 MG (1X PER APPLICATION)
     Route: 031
     Dates: start: 20160512
  14. LUCENTIS [Suspect]
     Active Substance: RANIBIZUMAB
     Dosage: 0.5 MG (PER APPLICATION)
     Route: 031
     Dates: start: 20171024
  15. LUCENTIS [Suspect]
     Active Substance: RANIBIZUMAB
     Dosage: 0.5 MG (1X PER APPLICATION)
     Route: 031
     Dates: start: 20160714
  16. LUCENTIS [Suspect]
     Active Substance: RANIBIZUMAB
     Dosage: 0.5 MG (PER APPLICATION)
     Route: 031
     Dates: start: 20171219

REACTIONS (4)
  - Hyponatraemia [Recovered/Resolved]
  - Urinary tract infection [Recovered/Resolved]
  - Upper limb fracture [Unknown]
  - Pelvic fracture [Recovered/Resolved with Sequelae]

NARRATIVE: CASE EVENT DATE: 20160607
